FAERS Safety Report 21890629 (Version 1)
Quarter: 2023Q1

REPORT INFORMATION
  Report Type: Spontaneous
  Country: US (occurrence: US)
  Receive Date: 20230120
  Receipt Date: 20230120
  Transmission Date: 20230417
  Serious: Yes (Life-Threatening, Hospitalization, Other)
  Sender: FDA-Public Use
  Company Number: US-PFIZER INC-PV202200131724

PATIENT
  Age: 37 Year
  Sex: Male
  Weight: 41 kg

DRUGS (11)
  1. EPINEPHRINE\LIDOCAINE HYDROCHLORIDE [Suspect]
     Active Substance: EPINEPHRINE\LIDOCAINE HYDROCHLORIDE
     Indication: Local anaesthesia
     Dosage: 3.6 ML [2% LIDOCAINE (72 MG) WITH 1:100 000 EPINEPHRINE (36 LG)]
  2. MIDAZOLAM [Suspect]
     Active Substance: MIDAZOLAM
     Indication: Sedation
     Dosage: 1 MG (INITIALLY)
     Route: 042
  3. MIDAZOLAM [Suspect]
     Active Substance: MIDAZOLAM
     Dosage: 1 MG (REPEATED 15 MINS AFTER FIRST DOSE)
     Route: 042
  4. MIDAZOLAM [Suspect]
     Active Substance: MIDAZOLAM
     Dosage: 1 MG (FINAL)
     Route: 042
  5. ARTICAINE\EPINEPHRINE [Suspect]
     Active Substance: ARTICAINE\EPINEPHRINE
     Indication: Local anaesthesia
     Dosage: 3.6 ML [4% ARTICAINE (144 MG) WITH 1:100 000 EPINEPHRINE (36 LG), BUCCAL + PALATAL INFILTRATION]
  6. ARTICAINE\EPINEPHRINE [Suspect]
     Active Substance: ARTICAINE\EPINEPHRINE
     Dosage: 1.8 ML [4% ARTICAINE (72 MG) WITH 1:100 000 EPINEPHRINE (18 LG), BUCCAL + LINGUAL INFILTRATION]
  7. ARTICAINE\EPINEPHRINE [Suspect]
     Active Substance: ARTICAINE\EPINEPHRINE
     Dosage: 1.8 ML ARTICAINE (72 MG), 1:100000 EPINEPHRINE (18 LG)BUCCAL INFILTRATION + PERIODONTAL LIGAMENT INJ
  8. DENTA 5000 PLUS [Concomitant]
     Active Substance: SODIUM FLUORIDE
  9. DOCUSATE [Concomitant]
     Active Substance: DOCUSATE
  10. OXYCODONE [Concomitant]
     Active Substance: OXYCODONE
  11. SENNA [Concomitant]
     Active Substance: SENNA LEAF\SENNOSIDES\SENNOSIDES A AND B
     Dosage: UNK

REACTIONS (4)
  - Hypoxia [Recovered/Resolved]
  - Electrocardiogram ST segment elevation [Recovered/Resolved]
  - Toxicity to various agents [Recovered/Resolved]
  - Overdose [Unknown]
